FAERS Safety Report 20175260 (Version 1)
Quarter: 2021Q4

REPORT INFORMATION
  Report Type: Spontaneous
  Country: US (occurrence: US)
  Receive Date: 20211213
  Receipt Date: 20211213
  Transmission Date: 20220304
  Serious: Yes (Life-Threatening, Hospitalization, Other)
  Sender: FDA-Public Use
  Company Number: US-MLMSERVICE-20211126-3241519-1

PATIENT
  Age: 75 Year
  Sex: Female

DRUGS (1)
  1. CAPECITABINE [Suspect]
     Active Substance: CAPECITABINE
     Indication: Cholangiocarcinoma

REACTIONS (6)
  - Hypovolaemic shock [Unknown]
  - Sepsis [Unknown]
  - Gastrointestinal haemorrhage [Unknown]
  - Necrotising oesophagitis [Unknown]
  - Gastrointestinal necrosis [Unknown]
  - Off label use [Unknown]
